FAERS Safety Report 25606110 (Version 1)
Quarter: 2025Q3

REPORT INFORMATION
  Report Type: Spontaneous
  Country: EU (occurrence: EU)
  Receive Date: 20250725
  Receipt Date: 20250725
  Transmission Date: 20251020
  Serious: Yes (Other)
  Sender: RANBAXY
  Company Number: EU-AFSSAPS-AVMA2025000190

PATIENT
  Age: 40 Year
  Sex: Male

DRUGS (4)
  1. VENLAFAXINE [Suspect]
     Active Substance: VENLAFAXINE HYDROCHLORIDE
     Indication: Product used for unknown indication
     Route: 065
  2. DIAZEPAM [Suspect]
     Active Substance: DIAZEPAM
     Indication: Product used for unknown indication
     Route: 065
  3. COCAINE [Suspect]
     Active Substance: COCAINE
     Indication: Product used for unknown indication
     Route: 065
  4. COCAETHYLENE [Suspect]
     Active Substance: COCAETHYLENE
     Indication: Product used for unknown indication
     Route: 065

REACTIONS (3)
  - Substance use disorder [Unknown]
  - Drug use disorder [Unknown]
  - Tachycardia [Unknown]

NARRATIVE: CASE EVENT DATE: 20250228
